FAERS Safety Report 5260880-7 (Version None)
Quarter: 2007Q1

REPORT INFORMATION
  Report Type: 
  Country: None (occurrence: None)
  Receive Date: 20070309
  Receipt Date: 20070301
  Transmission Date: 20070707
  Serious: Yes (Other)
  Sender: FDA-Public Use
  Company Number: US-JNJFOC-20070300542

PATIENT
  Age: 55 Year
  Sex: Male

DRUGS (3)
  1. REMICADE [Suspect]
     Indication: CROHN'S DISEASE
     Route: 042
  2. EFFEXOR [Concomitant]
  3. UNSPECIFIED MEDICATIONS [Concomitant]

REACTIONS (3)
  - DYSPNOEA [None]
  - FALL [None]
  - INFUSION RELATED REACTION [None]
